FAERS Safety Report 4318592-X (Version None)
Quarter: 2004Q1

REPORT INFORMATION
  Report Type: 
  Country: None (occurrence: None)
  Receive Date: 20040316
  Receipt Date: 20040316
  Transmission Date: 20041129
  Serious: Yes (Other)
  Sender: FDA-Public Use
  Company Number: None

PATIENT
  Age: 46 Year
  Sex: Female
  Weight: 59 kg

DRUGS (9)
  1. ISOVUE-128 [Suspect]
     Dosage: 130 ML IV
     Route: 042
     Dates: start: 20040217
  2. OXYCODONE [Concomitant]
  3. TRIAZOLAM [Concomitant]
  4. VANCERIL [Concomitant]
  5. ALBUTEROL [Concomitant]
  6. FLUOXETINE [Concomitant]
  7. METYROSINE [Concomitant]
  8. CLONAZEPAM [Concomitant]
  9. LISINOPRIL [Concomitant]

REACTIONS (3)
  - PRURITUS [None]
  - SNEEZING [None]
  - URTICARIA [None]
